FAERS Safety Report 5242215-9 (Version None)
Quarter: 2007Q1

REPORT INFORMATION
  Report Type: 
  Country: None (occurrence: None)
  Receive Date: 20070213
  Receipt Date: 20070202
  Transmission Date: 20070707
  Serious: Yes (Life-Threatening, Hospitalization, Other)
  Sender: FDA-Public Use
  Company Number: GXKR2007GB01370

PATIENT
  Age: 45 Year
  Sex: Female

DRUGS (2)
  1. TRIMETHOPRIM [Suspect]
     Indication: DRUG USE FOR UNKNOWN INDICATION
     Dosage: 200 MG, BID, ORAL
     Route: 048
     Dates: start: 20070118, end: 20070118
  2. LEVOTHYROXINE SODIUM [Concomitant]

REACTIONS (3)
  - OEDEMA [None]
  - RASH [None]
  - SWOLLEN TONGUE [None]
